FAERS Safety Report 9985257 (Version 1)
Quarter: 2014Q1

REPORT INFORMATION
  Report Type: Report from Study
  Country: US (occurrence: US)
  Receive Date: 20140307
  Receipt Date: 20140307
  Transmission Date: 20141002
  Serious: No
  Sender: FDA-Public Use
  Company Number: US-ABBVIE-13P-163-1185179-00

PATIENT
  Age: 55 Year
  Sex: Female

DRUGS (14)
  1. HUMIRA [Suspect]
     Indication: CROHN^S DISEASE
     Dates: start: 201308
  2. FLEXERIL [Suspect]
     Indication: MYALGIA
  3. FLEXERIL [Suspect]
     Indication: MUSCLE SPASMS
  4. TYLENOL WITH CODEIN #3 [Suspect]
     Indication: PAIN
     Dosage: EVERY 4 HOURS
  5. TYLENOL WITH CODEIN #3 [Suspect]
  6. LEXAPRO [Concomitant]
     Indication: DEPRESSION
  7. QUINAPRIL [Concomitant]
     Indication: BLOOD PRESSURE
  8. LOPERAMIDE [Concomitant]
     Indication: DIARRHOEA
  9. VIT D3 [Concomitant]
     Indication: VITAMIN SUPPLEMENTATION
  10. FISH OIL [Concomitant]
     Indication: PRODUCT USED FOR UNKNOWN INDICATION
  11. KETOROLAC [Concomitant]
     Indication: PRODUCT USED FOR UNKNOWN INDICATION
     Dosage: EYE DROPS TWO DROPS TO BOTH EYES
  12. COSOPT [Concomitant]
     Indication: INTRAOCULAR PRESSURE INCREASED
  13. MULTIVITAMIN [Concomitant]
     Indication: VITAMIN SUPPLEMENTATION
  14. MAXALT [Concomitant]
     Indication: MIGRAINE
     Route: 060

REACTIONS (7)
  - Eye disorder [Not Recovered/Not Resolved]
  - Somnolence [Not Recovered/Not Resolved]
  - Colitis [Not Recovered/Not Resolved]
  - Myalgia [Not Recovered/Not Resolved]
  - Muscle spasms [Not Recovered/Not Resolved]
  - Rash [Not Recovered/Not Resolved]
  - Feeling abnormal [Not Recovered/Not Resolved]
